FAERS Safety Report 5276867-4 (Version None)
Quarter: 2007Q1

REPORT INFORMATION
  Report Type: 
  Country: None (occurrence: None)
  Receive Date: 20070321
  Receipt Date: 20070307
  Transmission Date: 20070707
  Serious: Yes (Other)
  Sender: FDA-Public Use
  Company Number: TPA2006A01405

PATIENT
  Age: 55 Year
  Sex: Female

DRUGS (6)
  1. ROZEREM [Suspect]
     Indication: SLEEP DISORDER
     Dosage: 8 MG, HS, PER ORAL, 16 MG, QHS, PER ORAL
     Route: 048
     Dates: end: 20060801
  2. ROZEREM [Suspect]
     Indication: SLEEP DISORDER
     Dosage: 8 MG, HS, PER ORAL, 16 MG, QHS, PER ORAL
     Route: 048
     Dates: start: 20060801
  3. TENORMIN [Concomitant]
  4. ORAMORPH SR [Concomitant]
  5. MIRAPEX [Concomitant]
  6. EFFEXOR XR [Concomitant]

REACTIONS (5)
  - AMNESIA [None]
  - SOMNOLENCE [None]
  - TONGUE BITING [None]
  - TREATMENT NONCOMPLIANCE [None]
  - VISION BLURRED [None]
